FAERS Safety Report 11641472 (Version 2)
Quarter: 2015Q4

REPORT INFORMATION
  Report Type: Spontaneous
  Country: US (occurrence: US)
  Receive Date: 20151019
  Receipt Date: 20151216
  Transmission Date: 20160304
  Serious: Yes (Hospitalization)
  Sender: FDA-Public Use
  Company Number: US-BAYER-2015-442126

PATIENT
  Age: 14 Year
  Sex: Female

DRUGS (22)
  1. SYNTHROID [Concomitant]
     Active Substance: LEVOTHYROXINE SODIUM
  2. NOVOLOG [Concomitant]
     Active Substance: INSULIN ASPART
  3. DIFLUCAN [Concomitant]
     Active Substance: FLUCONAZOLE
  4. ZOFRAN [Concomitant]
     Active Substance: ONDANSETRON HYDROCHLORIDE
  5. DEPO-PROVERA [Concomitant]
     Active Substance: MEDROXYPROGESTERONE ACETATE
     Dosage: UNK
     Dates: start: 20080718
  6. DAUNORUBICIN [Concomitant]
     Active Substance: DAUNORUBICIN
  7. CYTOXAN [Concomitant]
     Active Substance: CYCLOPHOSPHAMIDE
  8. BACTROBAN [Concomitant]
     Active Substance: MUPIROCIN\MUPIROCIN CALCIUM
  9. TYLENOL PM [DIPHENHYDRAMINE HYDROCHLORIDE,PARACETAMOL] [Concomitant]
  10. YAZ [Suspect]
     Active Substance: DROSPIRENONE\ETHINYL ESTRADIOL
  11. LANTUS [Concomitant]
     Active Substance: INSULIN GLARGINE
  12. PERIDEX [Concomitant]
     Active Substance: CHLORHEXIDINE GLUCONATE
  13. CYTARABINE. [Concomitant]
     Active Substance: CYTARABINE
  14. NYSTATIN. [Concomitant]
     Active Substance: NYSTATIN
  15. ZANTAC [Concomitant]
     Active Substance: RANITIDINE HYDROCHLORIDE
  16. PREDNISONE. [Concomitant]
     Active Substance: PREDNISONE
  17. DESOGEN [DOFAMIUM CHLORIDE] [Concomitant]
  18. NOVOLOG [Concomitant]
     Active Substance: INSULIN ASPART
  19. CHLORPROMAZINE. [Concomitant]
     Active Substance: CHLORPROMAZINE
  20. YASMIN [Suspect]
     Active Substance: DROSPIRENONE\ETHINYL ESTRADIOL
  21. BACTRIM [Concomitant]
     Active Substance: SULFAMETHOXAZOLE\TRIMETHOPRIM
  22. VINCRISTINE [Concomitant]
     Active Substance: VINCRISTINE

REACTIONS (3)
  - Transverse sinus thrombosis [None]
  - Cerebral thrombosis [Recovered/Resolved]
  - Superior sagittal sinus thrombosis [None]

NARRATIVE: CASE EVENT DATE: 200807
